FAERS Safety Report 8960679 (Version 1)
Quarter: 2012Q4

REPORT INFORMATION
  Report Type: 
  Country: CO (occurrence: CO)
  Receive Date: 20121213
  Receipt Date: 20121213
  Transmission Date: 20130627
  Serious: Yes (Other)
  Sender: FDA-Public Use
  Company Number: CO-AMGEN-COLSP2012079991

PATIENT
  Age: 62 Year
  Sex: Female

DRUGS (2)
  1. ENBREL [Suspect]
     Indication: PSORIASIS
     Dosage: 50 mg, weekly
     Route: 058
     Dates: start: 2007, end: 201203
  2. METHOTREXATE [Concomitant]
     Indication: PSORIASIS
     Dosage: 1 tablet, 1x/day
     Route: 048
     Dates: start: 2007, end: 201203

REACTIONS (1)
  - Breast cancer [Not Recovered/Not Resolved]
